FAERS Safety Report 4653180-7 (Version None)
Quarter: 2005Q2

REPORT INFORMATION
  Report Type: 
  Country: None (occurrence: None)
  Receive Date: 20050505
  Receipt Date: 20031224
  Transmission Date: 20051028
  Serious: Yes (Death)
  Sender: FDA-Public Use
  Company Number: 200511314JP

PATIENT
  Age: 72 Year
  Sex: Female
  Weight: 36.6 kg

DRUGS (12)
  1. ARAVA [Suspect]
     Indication: RHEUMATOID ARTHRITIS
     Route: 048
     Dates: start: 20031212, end: 20031223
  2. PREDNISOLONE [Concomitant]
     Indication: RHEUMATOID ARTHRITIS
     Route: 048
     Dates: start: 20010601
  3. DIART [Concomitant]
     Indication: DIABETES MELLITUS
     Route: 048
  4. SLOW-K [Concomitant]
     Indication: HYPOKALAEMIA
     Route: 048
  5. OMEPRAL [Concomitant]
     Route: 048
  6. CYANOCOBALAMIN [Concomitant]
     Route: 048
  7. DAONIL [Concomitant]
     Indication: DIABETES MELLITUS
     Route: 048
  8. HALFDIGOXIN [Concomitant]
     Route: 048
  9. ASPARA-CA [Concomitant]
     Indication: OSTEOPOROSIS
     Route: 048
  10. ALDACTONE-A [Concomitant]
     Route: 048
  11. BIOFERMIN [Concomitant]
     Route: 048
  12. SHIOSOL [Concomitant]
     Indication: RHEUMATOID ARTHRITIS
     Dosage: DOSE: 10MG/WEEK
     Route: 030

REACTIONS (3)
  - BLOOD AMYLASE INCREASED [None]
  - CARDIO-RESPIRATORY ARREST [None]
  - DIARRHOEA [None]
